FAERS Safety Report 5684363-5 (Version None)
Quarter: 2008Q1

REPORT INFORMATION
  Report Type: 
  Country: None (occurrence: None)
  Receive Date: 20080328
  Receipt Date: 20080320
  Transmission Date: 20080703
  Serious: Yes (Other)
  Sender: FDA-Public Use
  Company Number: B0513650A

PATIENT
  Sex: Female

DRUGS (10)
  1. ANECTINE [Suspect]
     Indication: ANAESTHESIA
     Dosage: 50MGML UNKNOWN
     Route: 042
     Dates: start: 20080122
  2. DIFENE [Suspect]
     Indication: PREMEDICATION
     Dosage: 75MG PER DAY
     Route: 030
     Dates: start: 20080122
  3. FENTANYL CITRATE [Suspect]
     Indication: DRUG USE FOR UNKNOWN INDICATION
     Dosage: 100MCG PER DAY
     Route: 042
     Dates: start: 20080122
  4. FLAGYL [Suspect]
     Indication: DRUG USE FOR UNKNOWN INDICATION
     Dosage: 500MG PER DAY
     Route: 042
     Dates: start: 20080122
  5. MORPHINE SULFATE [Suspect]
     Indication: DRUG USE FOR UNKNOWN INDICATION
     Dosage: 5MG PER DAY
     Route: 042
     Dates: start: 20080122
  6. ONDANSETRON [Suspect]
     Indication: DRUG USE FOR UNKNOWN INDICATION
     Dosage: 4MG PER DAY
     Route: 042
     Dates: start: 20080122
  7. PROPOFOL [Suspect]
     Indication: ANAESTHESIA
     Dosage: 150MG PER DAY
     Route: 042
     Dates: start: 20080122
  8. CO-TRIMOXAZOLE [Suspect]
     Indication: DRUG USE FOR UNKNOWN INDICATION
     Dosage: 1.2G PER DAY
     Route: 042
     Dates: start: 20080122
  9. ATRACURIUM BESYLATE [Suspect]
     Indication: DRUG USE FOR UNKNOWN INDICATION
     Dosage: 30MG PER DAY
     Route: 042
     Dates: start: 20080122
  10. LIGNOCAINE [Suspect]
     Indication: DRUG USE FOR UNKNOWN INDICATION
     Dosage: 1PCT PER DAY
     Dates: start: 20080122

REACTIONS (4)
  - ANGIOEDEMA [None]
  - FACE OEDEMA [None]
  - GENERALISED OEDEMA [None]
  - OROPHARYNGEAL BLISTERING [None]
